FAERS Safety Report 6055043-1 (Version None)
Quarter: 2009Q1

REPORT INFORMATION
  Report Type: 
  Country: None (occurrence: None)
  Receive Date: 20090128
  Receipt Date: 20090119
  Transmission Date: 20090719
  Serious: Yes (Hospitalization)
  Sender: FDA-Public Use
  Company Number: PT-EISAI MEDICAL RESEARCH-E2090-00639-SPO-PT

PATIENT
  Age: 58 Year
  Sex: Female

DRUGS (8)
  1. ZONEGRAN [Suspect]
     Indication: CONVULSION
     Route: 048
     Dates: start: 20081201, end: 20081201
  2. ZONEGRAN [Interacting]
     Route: 048
     Dates: end: 20080101
  3. ZONEGRAN [Interacting]
     Route: 048
     Dates: end: 20090103
  4. ARICEPT [Interacting]
     Indication: DRUG USE FOR UNKNOWN INDICATION
     Route: 048
     Dates: start: 20080101
  5. LAMOTRIGINE [Interacting]
     Indication: CONVULSION
     Dosage: UNKNOWN
  6. LAMOTRIGINE [Interacting]
     Dates: end: 20090115
  7. OXCARBAZEPINE [Interacting]
     Indication: CONVULSION
     Dosage: UNKNOWN
  8. OXCARBAZEPINE [Interacting]
     Dates: end: 20090105

REACTIONS (5)
  - ABDOMINAL PAIN UPPER [None]
  - CHOLESTASIS [None]
  - DRUG INTERACTION [None]
  - DYSPNOEA [None]
  - URTICARIA [None]
